FAERS Safety Report 6923134-6 (Version None)
Quarter: 2010Q3

REPORT INFORMATION
  Report Type: 
  Country: None (occurrence: None)
  Receive Date: 20100813
  Receipt Date: 20100420
  Transmission Date: 20110219
  Serious: Yes (Other)
  Sender: FDA-Public Use
  Company Number: TN-PFIZER INC-2010019795

PATIENT
  Age: 50 Year
  Sex: Male

DRUGS (1)
  1. VORICONAZOLE [Suspect]
     Indication: MENINGITIS CRYPTOCOCCAL
     Dosage: 200 MG, 2X/DAY
     Route: 048
     Dates: start: 20100201

REACTIONS (1)
  - VESTIBULAR DISORDER [None]
